FAERS Safety Report 9173376 (Version 2)
Quarter: 2013Q2

REPORT INFORMATION
  Report Type: Spontaneous
  Country: FI (occurrence: FI)
  Receive Date: 20130320
  Receipt Date: 20130416
  Transmission Date: 20140414
  Serious: No
  Sender: FDA-Public Use
  Company Number: FI-JNJFOC-20130306394

PATIENT
  Age: 68 Year
  Sex: Female

DRUGS (2)
  1. STELARA [Suspect]
     Indication: PSORIASIS
     Dosage: PATIENT RECEIVED 3 INJECTIONS IN TOTAL
     Route: 058
  2. SERETIDE [Concomitant]
     Route: 065

REACTIONS (4)
  - Hepatic enzyme increased [Unknown]
  - Lipids increased [Unknown]
  - Platelet count decreased [Unknown]
  - Ovarian enlargement [Unknown]
